FAERS Safety Report 4921323-3 (Version None)
Quarter: 2006Q1

REPORT INFORMATION
  Report Type: 
  Country: None (occurrence: None)
  Receive Date: 20060221
  Receipt Date: 20060202
  Transmission Date: 20060701
  Serious: Yes (Hospitalization)
  Sender: FDA-Public Use
  Company Number: 218979

PATIENT
  Age: 42 Year
  Sex: Male
  Weight: 65 kg

DRUGS (4)
  1. AVASTIN [Suspect]
     Indication: COLORECTAL CANCER METASTATIC
     Dosage: 325 MG, Q2W, INTRAVENOUS
     Route: 042
     Dates: start: 20050316, end: 20050412
  2. IRINOTECAN HCL [Suspect]
     Indication: COLORECTAL CANCER METASTATIC
     Dosage: 320 MG, Q2W, INTRAVENOUS
     Route: 042
     Dates: start: 20050316
  3. FLUOROURACIL [Suspect]
     Indication: COLORECTAL CANCER METASTATIC
     Dosage: 4990 MG, Q2W, INTRAVENOUS
     Route: 042
     Dates: start: 20050316
  4. TRIANAL C (CODEINE PHOSPHATE, CAFFEINE, BUTALBITAL, ASPIRIN) [Concomitant]

REACTIONS (4)
  - ANAEMIA [None]
  - ANAL FISSURE [None]
  - HAEMORRHOIDS [None]
  - RECTAL HAEMORRHAGE [None]
